FAERS Safety Report 9882594 (Version 1)
Quarter: 2014Q1

REPORT INFORMATION
  Report Type: Report from Study
  Country: US (occurrence: US)
  Receive Date: 20140207
  Receipt Date: 20140207
  Transmission Date: 20141002
  Serious: Yes (Hospitalization)
  Sender: FDA-Public Use
  Company Number: US-ACTELION-A-US2014-94459

PATIENT
  Age: 35 Year
  Sex: Female

DRUGS (2)
  1. TRACLEER [Suspect]
     Indication: PULMONARY ARTERIAL HYPERTENSION
     Dosage: UNK
     Route: 048
  2. WARFARIN [Concomitant]

REACTIONS (7)
  - Renal failure [Unknown]
  - Haemorrhage [Unknown]
  - Transfusion [Unknown]
  - Blood potassium increased [Unknown]
  - Asthenia [Unknown]
  - Dizziness [Unknown]
  - Back pain [Unknown]
